FAERS Safety Report 10590036 (Version 2)
Quarter: 2014Q4

REPORT INFORMATION
  Report Type: Report from Study
  Country: BR (occurrence: BR)
  Receive Date: 20141118
  Receipt Date: 20141118
  Transmission Date: 20150529
  Serious: Yes (Hospitalization)
  Sender: FDA-Public Use
  Company Number: BR-SA-2014SA139319

PATIENT
  Age: 31 Year
  Sex: Female

DRUGS (2)
  1. SOLOSTAR [Concomitant]
     Active Substance: DEVICE
  2. APIDRA SOLOSTAR [Suspect]
     Active Substance: INSULIN GLULISINE
     Indication: DIABETES MELLITUS
     Route: 065
     Dates: start: 201409

REACTIONS (3)
  - Blood glucose increased [Unknown]
  - Product contamination physical [Unknown]
  - Hospitalisation [Unknown]

NARRATIVE: CASE EVENT DATE: 20141006
